FAERS Safety Report 6586956-X (Version None)
Quarter: 2010Q1

REPORT INFORMATION
  Report Type: 
  Country: None (occurrence: None)
  Receive Date: 20100217
  Receipt Date: 20090407
  Transmission Date: 20100710
  Serious: No
  Sender: FDA-Public Use
  Company Number: US-ALLERGAN-0904773US

PATIENT
  Age: 61 Year
  Sex: Female

DRUGS (2)
  1. BOTOX COSMETIC [Suspect]
     Indication: SKIN WRINKLING
     Dosage: 13 UNITS, SINGLE
     Route: 030
     Dates: start: 20090226, end: 20090226
  2. BOTOX COSMETIC [Suspect]
     Dosage: 13 UNITS, SINGLE
     Route: 030
     Dates: start: 20090307, end: 20090307

REACTIONS (1)
  - DRUG INEFFECTIVE [None]
